FAERS Safety Report 10143223 (Version 1)
Quarter: 2014Q2

REPORT INFORMATION
  Report Type: Spontaneous
  Country: BR (occurrence: None)
  Receive Date: 20140428
  Receipt Date: 20140428
  Transmission Date: 20141212
  Serious: Yes (Other)
  Sender: FDA-Public Use
  Company Number: BR-TORRENT-00002084

PATIENT
  Age: 84 Year
  Sex: Female

DRUGS (3)
  1. EPEZ [Suspect]
     Indication: DEMENTIA WITH LEWY BODIES
     Route: 048
     Dates: start: 20101215
  2. ANSITEC [Concomitant]
  3. RIVOTRIL [Concomitant]

REACTIONS (6)
  - Irritability [None]
  - Delirium [None]
  - Cognitive disorder [None]
  - Apathy [None]
  - Staring [None]
  - Off label use [None]
